FAERS Safety Report 13963023 (Version 5)
Quarter: 2017Q4

REPORT INFORMATION
  Report Type: Spontaneous
  Country: JP (occurrence: JP)
  Receive Date: 20170913
  Receipt Date: 20171219
  Transmission Date: 20180320
  Serious: Yes (Hospitalization)
  Sender: FDA-Public Use
  Company Number: JP-CONCORDIA PHARMACEUTICALS INC.-GSH201709-005075

PATIENT
  Age: 37 Year
  Sex: Female

DRUGS (8)
  1. PREDNISOLONE. [Concomitant]
     Active Substance: PREDNISOLONE
     Dates: start: 20170706
  2. ALLELOCK [Concomitant]
     Active Substance: OLOPATADINE HYDROCHLORIDE
     Indication: RASH
     Dates: start: 20170601
  3. PREDONINE [Concomitant]
     Active Substance: PREDNISOLONE
     Indication: SYSTEMIC LUPUS ERYTHEMATOSUS
     Dates: start: 20170601
  4. DERMOVATE [Concomitant]
     Active Substance: CLOBETASOL
  5. PLAQUENIL [Suspect]
     Active Substance: HYDROXYCHLOROQUINE SULFATE
     Indication: RASH
     Dosage: AT AN ALTERNATE DOSE OF 1 TABLET DAILY AND 2 TABLETS DAILY
     Route: 048
     Dates: start: 20170706, end: 20170722
  6. OLOPATADINE HYDROCHLORIDE. [Concomitant]
     Active Substance: OLOPATADINE HYDROCHLORIDE
     Dates: start: 20170601
  7. HEPARINOID [Concomitant]
     Active Substance: CHONDROITIN SULFATE (BOVINE)
  8. CALFINA [Concomitant]
     Active Substance: ALFACALCIDOL
     Dates: start: 20170608

REACTIONS (11)
  - Myalgia [Recovering/Resolving]
  - Drug eruption [Recovering/Resolving]
  - Urticaria [Recovering/Resolving]
  - Skin lesion [Recovering/Resolving]
  - Arthralgia [Recovering/Resolving]
  - Pyrexia [Recovering/Resolving]
  - Pain [Recovering/Resolving]
  - Rash maculo-papular [Recovering/Resolving]
  - Burning sensation [Recovering/Resolving]
  - Erythema [Recovering/Resolving]
  - Pruritus [Recovering/Resolving]

NARRATIVE: CASE EVENT DATE: 201707
